FAERS Safety Report 7741202-6 (Version None)
Quarter: 2011Q3

REPORT INFORMATION
  Report Type: 
  Country: None (occurrence: None)
  Receive Date: 20110909
  Receipt Date: 20110825
  Transmission Date: 20111222
  Serious: Yes (Death)
  Sender: FDA-Public Use
  Company Number: GB-BAUSCH-2011BL005762

PATIENT
  Age: 60 Year
  Sex: Male

DRUGS (12)
  1. RITUXIMAB [Suspect]
     Indication: RICHTER'S SYNDROME
     Route: 065
  2. VINCRISTINE [Suspect]
     Indication: RICHTER'S SYNDROME
     Route: 065
  3. FLUDARABINE PHOSPHATE [Concomitant]
  4. METHYLPREDNISOLONE [Concomitant]
  5. DOXORUBICIN HCL [Suspect]
     Indication: RICHTER'S SYNDROME
     Route: 065
  6. RITUXIMAB [Concomitant]
  7. PREDNISOLONE [Suspect]
     Indication: RICHTER'S SYNDROME
     Dosage: DOSE UNIT:UNKNOWN
     Route: 065
  8. METHOTREXATE [Suspect]
     Indication: RICHTER'S SYNDROME
     Route: 042
  9. CYCLOPHOSPHAMIDE [Concomitant]
  10. CHLORAMBUCIL [Concomitant]
  11. CYCLOPHOSPHAMIDE [Suspect]
     Indication: RICHTER'S SYNDROME
     Route: 065
  12. METHYLPREDNISOLONE [Suspect]
     Indication: RICHTER'S SYNDROME
     Dosage: DOSE UNIT:UNKNOWN
     Route: 065

REACTIONS (5)
  - HYPOTHERMIA [None]
  - DISEASE PROGRESSION [None]
  - BRADYCARDIA [None]
  - CONFUSIONAL STATE [None]
  - GAZE PALSY [None]
